FAERS Safety Report 4451542-4 (Version None)
Quarter: 2004Q3

REPORT INFORMATION
  Report Type: 
  Country: None (occurrence: None)
  Receive Date: 20040915
  Receipt Date: 20040908
  Transmission Date: 20050211
  Serious: Yes (Other)
  Sender: FDA-Public Use
  Company Number: US-JNJFOC-20040902094

PATIENT
  Sex: Male

DRUGS (1)
  1. EXTRA STRENGTH TYLENOL COOL (ACETAMINOPHEN) CAPLET [Suspect]
     Indication: DRUG USE FOR UNKNOWN INDICATION
     Dosage: 500 MG, 1 IN 1 TOTAL, ORAL
     Route: 048

REACTIONS (1)
  - OESOPHAGITIS [None]
